FAERS Safety Report 8564937-4 (Version None)
Quarter: 2012Q3

REPORT INFORMATION
  Report Type: 
  Country: None (occurrence: None)
  Receive Date: 20120803
  Receipt Date: 20120727
  Transmission Date: 20120928
  Serious: Yes (Other)
  Sender: FDA-Public Use
  Company Number: US-PFIZER INC-2012182899

PATIENT
  Age: 63 Year
  Sex: Female

DRUGS (1)
  1. ROBITUSSIN LINGERING COLD LONG-ACTING COUGH [Suspect]
     Dosage: UNK

REACTIONS (2)
  - HYPOKINESIA [None]
  - PRURITUS [None]
